FAERS Safety Report 5413362-3 (Version None)
Quarter: 2007Q3

REPORT INFORMATION
  Report Type: 
  Country: None (occurrence: None)
  Receive Date: 20070814
  Receipt Date: 20070801
  Transmission Date: 20080115
  Serious: Yes (Other)
  Sender: FDA-Public Use
  Company Number: BR-JNJFOC-20070800792

PATIENT
  Age: 7 Year
  Sex: Male
  Weight: 39 kg

DRUGS (5)
  1. MAXIFEN [Suspect]
     Route: 048
  2. MAXIFEN [Suspect]
     Indication: TONSILLITIS
     Route: 048
  3. CEFACLOR [Concomitant]
     Indication: TONSILLITIS
     Route: 048
  4. DIPIRONA [Concomitant]
     Indication: PYREXIA
  5. UNSPECIFIED MEDICATION [Concomitant]
     Indication: TONSILLITIS

REACTIONS (5)
  - DEPRESSED MOOD [None]
  - IRRITABILITY [None]
  - NERVOUSNESS [None]
  - PALLOR [None]
  - SOMNOLENCE [None]
